FAERS Safety Report 9075977 (Version 1)
Quarter: 2013Q1

REPORT INFORMATION
  Report Type: Report from Study
  Country: US (occurrence: US)
  Receive Date: 20130129
  Receipt Date: 20130129
  Transmission Date: 20140127
  Serious: No
  Sender: FDA-Public Use
  Company Number: US-ABBOTT-12P-163-0944282-00

PATIENT
  Age: 42 Year
  Sex: Male

DRUGS (5)
  1. HUMIRA 40 MG/ 0.8 ML PRE-FILLED SYRINGE [Suspect]
     Indication: CROHN^S DISEASE
     Dates: start: 20120322
  2. DICYCLOMINE [Concomitant]
     Indication: ANXIETY
     Dosage: 4 TABS QD
  3. ALPRAZOLAM [Concomitant]
     Indication: ANXIETY
     Dosage: 0.5MG UP TO 4 TABS EVERY DAY
  4. OMEPRAZOLE [Concomitant]
     Indication: GASTROOESOPHAGEAL REFLUX DISEASE
  5. TRAMADOL [Concomitant]
     Indication: PRODUCT USED FOR UNKNOWN INDICATION
     Dosage: 50 MG: UP TO 4 TABS DAILY PRN

REACTIONS (3)
  - Feeling abnormal [Unknown]
  - Hypoaesthesia [Not Recovered/Not Resolved]
  - Hypoaesthesia [Unknown]
